FAERS Safety Report 14289964 (Version 1)
Quarter: 2017Q4

REPORT INFORMATION
  Report Type: Spontaneous
  Country: HU (occurrence: HU)
  Receive Date: 20171214
  Receipt Date: 20171214
  Transmission Date: 20180321
  Serious: Yes (Death, Other)
  Sender: FDA-Public Use
  Company Number: HU-PFIZER INC-2017517362

PATIENT
  Sex: Male

DRUGS (1)
  1. VIAGRA [Suspect]
     Active Substance: SILDENAFIL CITRATE
     Dosage: 2X/WEEK, FOR APPROXIMATELY 5 YEARS
     Dates: end: 20170830

REACTIONS (8)
  - Macular oedema [Unknown]
  - Retinal artery stenosis [Unknown]
  - Retinal haemorrhage [Unknown]
  - Depression [Unknown]
  - Diabetic retinopathy [Unknown]
  - Retinal vascular occlusion [Unknown]
  - Completed suicide [Fatal]
  - Vision blurred [Unknown]

NARRATIVE: CASE EVENT DATE: 2015
